FAERS Safety Report 7390987-X (Version None)
Quarter: 2011Q2

REPORT INFORMATION
  Report Type: 
  Country: None (occurrence: None)
  Receive Date: 20110404
  Receipt Date: 20110330
  Transmission Date: 20111010
  Serious: No
  Sender: FDA-Public Use
  Company Number: US-PFIZER INC-2011071371

PATIENT
  Age: 79 Year
  Sex: Male
  Weight: 72 kg

DRUGS (9)
  1. CADUET [Concomitant]
     Dosage: UNK
  2. LANTUS [Concomitant]
     Dosage: UNK
  3. LOPRESSOR HCT [Concomitant]
     Dosage: UNK
  4. ACETYLSALICYLIC ACID [Concomitant]
     Dosage: UNK
  5. LASIX [Concomitant]
     Dosage: UNK
  6. ZOCOR [Concomitant]
     Dosage: UNK
  7. HEPARIN [Concomitant]
     Dosage: UNK
     Route: 058
  8. NOVOLOG [Concomitant]
     Dosage: UNK
  9. UNASYN [Suspect]
     Indication: ABDOMINAL ABSCESS
     Dosage: 3 G, UNK
     Route: 042
     Dates: start: 20110324

REACTIONS (2)
  - PRURITUS [None]
  - RASH [None]
